FAERS Safety Report 5923951-5 (Version None)
Quarter: 2008Q4

REPORT INFORMATION
  Report Type: 
  Country: None (occurrence: None)
  Receive Date: 20081015
  Receipt Date: 20080929
  Transmission Date: 20090506
  Serious: Yes (Other)
  Sender: FDA-Public Use
  Company Number: DSA_32473_2008

PATIENT
  Age: 60 Year
  Sex: Female

DRUGS (2)
  1. ENALAPRIL MALEATE [Suspect]
     Indication: HYPERTENSION
     Dosage: (20 MG QD ORAL), (40 MG QD ORAL)
     Route: 048
     Dates: start: 19930101, end: 20080919
  2. ENALAPRIL MALEATE [Suspect]
     Indication: HYPERTENSION
     Dosage: (20 MG QD ORAL), (40 MG QD ORAL)
     Route: 048
     Dates: start: 20080920

REACTIONS (2)
  - HEADACHE [None]
  - HYPERTENSIVE CRISIS [None]
